FAERS Safety Report 23144004 (Version 1)
Quarter: 2023Q4

REPORT INFORMATION
  Report Type: Spontaneous
  Country: IN (occurrence: IN)
  Receive Date: 20231103
  Receipt Date: 20231103
  Transmission Date: 20240109
  Serious: Yes (Life-Threatening, Hospitalization, Other)
  Sender: FDA-Public Use
  Company Number: IN-ALEMBIC PHARMACUETICALS LIMITED-2023SCAL001018

PATIENT

DRUGS (1)
  1. LOSARTAN POTASSIUM [Suspect]
     Active Substance: LOSARTAN POTASSIUM
     Indication: Hypertension
     Dosage: 50 MILLIGRAM, QD EVERY EVENING
     Route: 048

REACTIONS (12)
  - Acute respiratory failure [Recovering/Resolving]
  - Dyspnoea [Recovered/Resolved]
  - Hypertension [Recovered/Resolved]
  - Tachypnoea [Recovered/Resolved]
  - Dysphonia [Unknown]
  - Pulmonary congestion [Recovered/Resolved]
  - Lung opacity [Recovered/Resolved]
  - Cough [Unknown]
  - Anaphylactic reaction [Recovering/Resolving]
  - Angioedema [Recovered/Resolved]
  - Swelling face [Recovered/Resolved]
  - Swelling [Recovered/Resolved]
